FAERS Safety Report 10603024 (Version 1)
Quarter: 2014Q4

REPORT INFORMATION
  Report Type: Spontaneous
  Country: DE (occurrence: DE)
  Receive Date: 20141124
  Receipt Date: 20141124
  Transmission Date: 20150529
  Serious: Yes (Other)
  Sender: FDA-Public Use
  Company Number: DE-ABBVIE-14P-062-1311861-00

PATIENT
  Age: 64 Year
  Sex: Female

DRUGS (12)
  1. ERGENYL [Suspect]
     Active Substance: VALPROIC ACID
     Route: 048
     Dates: start: 20140606, end: 20140713
  2. ZYPREXA [Suspect]
     Active Substance: OLANZAPINE
     Route: 048
     Dates: start: 20140526, end: 20140527
  3. ERGENYL [Suspect]
     Active Substance: VALPROIC ACID
     Route: 048
     Dates: start: 20140714
  4. ZYPREXA [Suspect]
     Active Substance: OLANZAPINE
     Route: 048
     Dates: start: 20140528, end: 20140905
  5. ERGENYL [Suspect]
     Active Substance: VALPROIC ACID
     Route: 048
     Dates: start: 20140727, end: 20140728
  6. ZYPREXA [Suspect]
     Active Substance: OLANZAPINE
     Route: 048
     Dates: start: 20140524, end: 20140525
  7. ERGENYL [Suspect]
     Active Substance: VALPROIC ACID
     Indication: PRODUCT USED FOR UNKNOWN INDICATION
     Route: 048
     Dates: start: 20121001, end: 20140525
  8. ERGENYL [Suspect]
     Active Substance: VALPROIC ACID
     Route: 048
     Dates: start: 20140526, end: 20140605
  9. ERGENYL [Suspect]
     Active Substance: VALPROIC ACID
     Route: 048
     Dates: start: 20140729, end: 20140729
  10. ZYPREXA [Suspect]
     Active Substance: OLANZAPINE
     Indication: PRODUCT USED FOR UNKNOWN INDICATION
     Route: 048
     Dates: start: 20121001, end: 20140523
  11. ERGENYL [Suspect]
     Active Substance: VALPROIC ACID
     Route: 048
     Dates: start: 20140715, end: 20140716
  12. ERGENYL [Suspect]
     Active Substance: VALPROIC ACID
     Route: 048
     Dates: start: 20140717, end: 20140726

REACTIONS (1)
  - Akathisia [Recovering/Resolving]

NARRATIVE: CASE EVENT DATE: 20121015
